APPROVED DRUG PRODUCT: CAPTOPRIL
Active Ingredient: CAPTOPRIL
Strength: 50MG
Dosage Form/Route: TABLET;ORAL
Application: A212223 | Product #003
Applicant: SETON PHARMACEUTICALS LLC
Approved: Oct 30, 2019 | RLD: No | RS: No | Type: DISCN